FAERS Safety Report 12100225 (Version 1)
Quarter: 2016Q1

REPORT INFORMATION
  Report Type: Spontaneous
  Country: US (occurrence: None)
  Receive Date: 20160219
  Receipt Date: 20160219
  Transmission Date: 20160526
  Serious: No
  Sender: FDA-Public Use
  Company Number: None

PATIENT

DRUGS (4)
  1. PAROXETINE HCL MYLAN PHRMACEUTIACLS, INC [Suspect]
     Active Substance: PAROXETINE HYDROCHLORIDE
     Dosage: BOTTLE
     Route: 048
  2. PAROXETINE HCL MYLAN PHARMACEUTICALS, INC. [Suspect]
     Active Substance: PAROXETINE HYDROCHLORIDE
     Dosage: BOTTLE
     Route: 048
  3. PAROXETIINE MYLAN PHRAMACEUTICALS, INC. [Suspect]
     Active Substance: PAROXETINE\PAROXETINE HYDROCHLORIDE
     Dosage: BOTTLE
     Route: 048
  4. MECLIZINE HCL MYLAN PHARMACEUTICALS, INC . [Suspect]
     Active Substance: MECLIZINE HYDROCHLORIDE
     Dosage: BOTTLE
     Route: 048

REACTIONS (4)
  - Product packaging confusion [None]
  - Product name confusion [None]
  - Product label confusion [None]
  - Drug dispensing error [None]
